FAERS Safety Report 20874376 (Version 1)
Quarter: 2022Q2

REPORT INFORMATION
  Report Type: Spontaneous
  Country: US (occurrence: None)
  Receive Date: 20220525
  Receipt Date: 20220525
  Transmission Date: 20220721
  Serious: No
  Sender: FDA-Public Use
  Company Number: None

PATIENT
  Age: 48 Year
  Sex: Male
  Weight: 83.91 kg

DRUGS (6)
  1. ADAKVEO [Suspect]
     Active Substance: CRIZANLIZUMAB-TMCA
     Indication: Haemoglobinopathy
     Dosage: FREQUENCY : MONTHLY;?
     Route: 042
     Dates: start: 202202
  2. ASPIRIN [Concomitant]
  3. CLONIDINE TRANSDERMAL PATCH [Concomitant]
  4. FOLIC ACID [Concomitant]
  5. METOPROLOL SUCCINATE ER [Concomitant]
  6. VITAMIN D3 [Concomitant]
     Active Substance: CHOLECALCIFEROL

REACTIONS (2)
  - Fall [None]
  - Joint injury [None]

NARRATIVE: CASE EVENT DATE: 20220516
